FAERS Safety Report 4855388-4 (Version None)
Quarter: 2005Q4

REPORT INFORMATION
  Report Type: 
  Country: None (occurrence: None)
  Receive Date: 20051125
  Receipt Date: 20050404
  Transmission Date: 20060501
  Serious: Yes (Life-Threatening, Hospitalization)
  Sender: FDA-Public Use
  Company Number: US-JNJFOC-20050106813

PATIENT
  Age: 49 Year
  Sex: Male
  Weight: 60 kg

DRUGS (1)
  1. LEVAQUIN [Suspect]
     Indication: DRUG USE FOR UNKNOWN INDICATION
     Dosage: 500 MG, ORAL
     Route: 048
     Dates: start: 20050120, end: 20050120

REACTIONS (2)
  - ANAPHYLACTIC REACTION [None]
  - INTERNATIONAL NORMALISED RATIO INCREASED [None]
